FAERS Safety Report 20864801 (Version 1)
Quarter: 2022Q2

REPORT INFORMATION
  Report Type: Spontaneous
  Country: US (occurrence: US)
  Receive Date: 20220524
  Receipt Date: 20220524
  Transmission Date: 20220721
  Serious: Yes (Other)
  Sender: FDA-Public Use
  Company Number: US-CELLTRION INC.-2022US007075

PATIENT

DRUGS (1)
  1. TRUXIMA [Suspect]
     Active Substance: RITUXIMAB-ABBS
     Indication: Relapsing-remitting multiple sclerosis
     Dosage: UNK

REACTIONS (2)
  - Relapsing-remitting multiple sclerosis [Unknown]
  - Off label use [Unknown]
